APPROVED DRUG PRODUCT: BROMFENAC SODIUM
Active Ingredient: BROMFENAC SODIUM
Strength: EQ 0.09% ACID
Dosage Form/Route: SOLUTION/DROPS;OPHTHALMIC
Application: A203368 | Product #001
Applicant: RISING PHARMA HOLDING INC
Approved: Jun 3, 2019 | RLD: No | RS: No | Type: DISCN